FAERS Safety Report 12603252 (Version 2)
Quarter: 2016Q3

REPORT INFORMATION
  Report Type: Spontaneous
  Country: US (occurrence: US)
  Receive Date: 20160728
  Receipt Date: 20160809
  Transmission Date: 20161109
  Serious: Yes (Death, Hospitalization)
  Sender: FDA-Public Use
  Company Number: US-ACTELION-A-US2016-139739

PATIENT
  Age: 58 Year
  Sex: Male

DRUGS (10)
  1. KETOROLAC TROMETHAMINE. [Concomitant]
     Active Substance: KETOROLAC TROMETHAMINE
  2. PANTOPRAZOLE [Concomitant]
     Active Substance: PANTOPRAZOLE SODIUM
  3. GENERLAC [Concomitant]
     Active Substance: LACTULOSE
  4. FOLIC ACID. [Concomitant]
     Active Substance: FOLIC ACID
  5. FUROSEMIDE. [Concomitant]
     Active Substance: FUROSEMIDE
  6. HYDROXYZINE HCL [Concomitant]
     Active Substance: HYDROXYZINE HYDROCHLORIDE
  7. OPSUMIT [Suspect]
     Active Substance: MACITENTAN
     Indication: PULMONARY ARTERIAL HYPERTENSION
     Dosage: 10 MG, QD
     Route: 048
     Dates: start: 201410, end: 20160609
  8. SPIRONOLACTONE. [Concomitant]
     Active Substance: SPIRONOLACTONE
  9. IRON [Concomitant]
     Active Substance: IRON
  10. TRAZODONE [Concomitant]
     Active Substance: TRAZODONE HYDROCHLORIDE

REACTIONS (4)
  - Cardiac arrest [Fatal]
  - Pulmonary arterial hypertension [Fatal]
  - Respiratory failure [Fatal]
  - Disease progression [Fatal]

NARRATIVE: CASE EVENT DATE: 20160609
